FAERS Safety Report 5324924-6 (Version None)
Quarter: 2007Q2

REPORT INFORMATION
  Report Type: 
  Country: None (occurrence: None)
  Receive Date: 20070515
  Receipt Date: 20070504
  Transmission Date: 20071010
  Serious: No
  Sender: FDA-Public Use
  Company Number: SE-BAXTER-2007BH003879

PATIENT
  Age: 30 Year
  Sex: Female

DRUGS (10)
  1. KIOVIG [Suspect]
     Indication: MULTIPLE SCLEROSIS
     Dosage: DOSE UNIT:UNKNOWN
     Route: 065
     Dates: start: 20070401
  2. METRONIDAZOLE [Concomitant]
     Route: 042
     Dates: start: 20070417, end: 20070417
  3. CEFUROXIME [Concomitant]
     Route: 042
     Dates: start: 20070417, end: 20070418
  4. FRAGMIN [Concomitant]
     Route: 058
     Dates: start: 20070417, end: 20070418
  5. PAMOL [Concomitant]
     Route: 048
     Dates: start: 20070417, end: 20070420
  6. DICLOFENAC [Concomitant]
     Route: 048
     Dates: start: 20070417, end: 20070420
  7. TRAMADOL HCL [Concomitant]
     Route: 048
     Dates: start: 20070418, end: 20070418
  8. FRAGMIN [Concomitant]
     Dosage: DOSE UNIT:UNKNOWN
     Route: 058
     Dates: start: 20070419, end: 20070420
  9. MORFIN [Concomitant]
     Route: 058
     Dates: start: 20070418, end: 20070418
  10. IMMUNE GLOBULIN INTRAVENOUS (HUMAN) [Concomitant]
     Dates: start: 20070418, end: 20070418

REACTIONS (3)
  - CHILLS [None]
  - OXYGEN SATURATION DECREASED [None]
  - UNRESPONSIVE TO STIMULI [None]
